FAERS Safety Report 8121365-3 (Version None)
Quarter: 2012Q1

REPORT INFORMATION
  Report Type: 
  Country: None (occurrence: None)
  Receive Date: 20120208
  Receipt Date: 20120131
  Transmission Date: 20120608
  Serious: Yes (Other)
  Sender: FDA-Public Use
  Company Number: US-SANOFI-AVENTIS-2012SA007455

PATIENT
  Age: 61 Year
  Sex: Male
  Weight: 102.05 kg

DRUGS (2)
  1. ASPIRIN [Suspect]
  2. PLAVIX [Suspect]
     Route: 048
     Dates: start: 20100101

REACTIONS (2)
  - HAEMORRHAGE URINARY TRACT [None]
  - URINARY TRACT INFECTION [None]
